FAERS Safety Report 7465264-9 (Version None)
Quarter: 2011Q2

REPORT INFORMATION
  Report Type: 
  Country: None (occurrence: None)
  Receive Date: 20110509
  Receipt Date: 20110426
  Transmission Date: 20111010
  Serious: Yes (Other)
  Sender: FDA-Public Use
  Company Number: PHHY2011DE35440

PATIENT
  Sex: Male

DRUGS (1)
  1. ZOMETA [Suspect]
     Indication: PROSTATE CANCER
     Dosage: 4 MG/5ML EVERY 4 WEEKS
     Route: 042
     Dates: start: 20091101

REACTIONS (2)
  - PAIN [None]
  - OSTEONECROSIS [None]
